FAERS Safety Report 21176624 (Version 1)
Quarter: 2022Q3

REPORT INFORMATION
  Report Type: Spontaneous
  Country: US (occurrence: US)
  Receive Date: 20220805
  Receipt Date: 20220805
  Transmission Date: 20221027
  Serious: No
  Sender: FDA-Public Use
  Company Number: US-BAYER-2022A105993

PATIENT
  Age: 58 Year
  Sex: Female

DRUGS (3)
  1. ALEVE [Suspect]
     Active Substance: NAPROXEN SODIUM
     Indication: Foot fracture
     Route: 048
     Dates: start: 20220724, end: 20220727
  2. ALEVE [Suspect]
     Active Substance: NAPROXEN SODIUM
     Indication: Foot fracture
     Dosage: UNK
     Route: 048
  3. VITAMINS NOS [Concomitant]
     Active Substance: VITAMINS

REACTIONS (2)
  - Off label use [Unknown]
  - Drug ineffective [None]

NARRATIVE: CASE EVENT DATE: 20210101
